FAERS Safety Report 8594236-6 (Version None)
Quarter: 2012Q3

REPORT INFORMATION
  Report Type: 
  Country: None (occurrence: None)
  Receive Date: 20120814
  Receipt Date: 20120801
  Transmission Date: 20120928
  Serious: Yes (Other)
  Sender: FDA-Public Use
  Company Number: CHPA2012US017348

PATIENT
  Age: 57 Year
  Sex: Female

DRUGS (1)
  1. MYOFLEX ANALGESIC CREME [Suspect]
     Indication: SCOLIOSIS
     Dosage: UNK, UNK
     Route: 061

REACTIONS (5)
  - GASTROINTESTINAL TRACT IRRITATION [None]
  - THERAPEUTIC RESPONSE UNEXPECTED [None]
  - MALAISE [None]
  - OFF LABEL USE [None]
  - GASTROINTESTINAL INFECTION [None]
